FAERS Safety Report 7956789-8 (Version None)
Quarter: 2011Q4

REPORT INFORMATION
  Report Type: 
  Country: None (occurrence: None)
  Receive Date: 20111201
  Receipt Date: 20111124
  Transmission Date: 20120403
  Serious: Yes (Other)
  Sender: FDA-Public Use
  Company Number: AUR-APL-2011-05938

PATIENT
  Age: 38 Year
  Sex: Female

DRUGS (10)
  1. TOPAMAX [Suspect]
     Indication: EPILEPSY
     Dosage: (50 MG), ORAL, 100 MG (50 MG, 2 IN 1 D), ORAL, 200 MG (100 MG, 2 IN 1 D), ORAL
     Route: 048
     Dates: start: 20070703
  2. TOPAMAX [Suspect]
     Indication: EPILEPSY
     Dosage: (50 MG), ORAL, 100 MG (50 MG, 2 IN 1 D), ORAL, 200 MG (100 MG, 2 IN 1 D), ORAL
     Route: 048
     Dates: start: 20100915, end: 20100915
  3. TOPAMAX [Suspect]
     Indication: EPILEPSY
     Dosage: (50 MG), ORAL, 100 MG (50 MG, 2 IN 1 D), ORAL, 200 MG (100 MG, 2 IN 1 D), ORAL
     Route: 048
     Dates: start: 20101025
  4. CLONAZEPAM [Concomitant]
  5. ANTIDEPRESSANTS NOS (ANTIDEPRESSANTS) [Concomitant]
  6. FLUOXETINE [Suspect]
     Indication: PRODUCT USED FOR UNKNOWN INDICATION
     Dosage: 20 MG (20 MG, 1 IN 1 D), UNKNOWN
     Dates: start: 20101018, end: 20110831
  7. TOPAMAX [Suspect]
     Indication: EPILEPSY
     Dosage: 50 MG (50 MG, 1 IN 1 D), ORAL, 150 MG (150 MG, 1 IN 1 D), ORAL
     Route: 048
     Dates: start: 20110830, end: 20110830
  8. TOPAMAX [Suspect]
     Indication: EPILEPSY
     Dosage: 50 MG (50 MG, 1 IN 1 D), ORAL, 150 MG (150 MG, 1 IN 1 D), ORAL
     Route: 048
     Dates: start: 20091130, end: 20100623
  9. FOLIC ACID [Concomitant]
  10. KEPPRA [Concomitant]

REACTIONS (14)
  - NERVE INJURY [None]
  - GINGIVAL BLEEDING [None]
  - ABDOMINAL PAIN UPPER [None]
  - ELECTRIC SHOCK [None]
  - IRRITABLE BOWEL SYNDROME [None]
  - SOMNOLENCE [None]
  - DIARRHOEA [None]
  - DEPRESSION [None]
  - PALPITATIONS [None]
  - MOOD SWINGS [None]
  - TOOTH LOSS [None]
  - WEIGHT DECREASED [None]
  - EMOTIONAL POVERTY [None]
  - FEELING ABNORMAL [None]
